FAERS Safety Report 6317948-3 (Version None)
Quarter: 2009Q3

REPORT INFORMATION
  Report Type: 
  Country: None (occurrence: None)
  Receive Date: 20090820
  Receipt Date: 20090820
  Transmission Date: 20100115
  Serious: Yes (Death)
  Sender: FDA-Public Use
  Company Number: None

PATIENT
  Sex: Male
  Weight: 90 kg

DRUGS (12)
  1. RISPERDAL [Suspect]
     Indication: DELIRIUM
     Dosage: .5 MG OR BID-
     Dates: start: 20090530, end: 20090606
  2. AMLODIPINE [Concomitant]
  3. LABETALOL HCL [Concomitant]
  4. COLACE [Concomitant]
  5. HEPARIN SOD-PORC- [Concomitant]
  6. HEPARIN [Concomitant]
  7. REGULAR INSULIN [Concomitant]
  8. LANTUS [Concomitant]
  9. NEPRO [Concomitant]
  10. SERTRALINE HCL [Concomitant]
  11. RISPERIDONE [Concomitant]
  12. SIMVASTATIN [Concomitant]

REACTIONS (13)
  - AGITATION [None]
  - BLOOD PRESSURE IMMEASURABLE [None]
  - CEREBROVASCULAR ACCIDENT [None]
  - COLD SWEAT [None]
  - CONVULSION [None]
  - DISCOMFORT [None]
  - DROOLING [None]
  - FEELING HOT [None]
  - HYPERHIDROSIS [None]
  - MOANING [None]
  - PULSE ABSENT [None]
  - RENAL FAILURE [None]
  - RESPIRATORY ARREST [None]
